FAERS Safety Report 6598145-3 (Version None)
Quarter: 2010Q1

REPORT INFORMATION
  Report Type: 
  Country: None (occurrence: None)
  Receive Date: 20100224
  Receipt Date: 20050303
  Transmission Date: 20100710
  Serious: No
  Sender: FDA-Public Use
  Company Number: US-ALLERGAN-200501730

PATIENT
  Age: 57 Year
  Sex: Female
  Weight: 81.364 kg

DRUGS (7)
  1. BOTOX [Suspect]
     Indication: MUSCLE SPASTICITY
     Dosage: HEAD, NECK , SHOULDER BLADES
     Route: 030
     Dates: start: 20050203
  2. BOTOX [Suspect]
     Indication: PAIN
  3. ZANAFLEX [Concomitant]
     Indication: DRUG USE FOR UNKNOWN INDICATION
  4. SYNTHROID [Concomitant]
     Indication: HYPOTHYROIDISM
  5. GLUCOSAMINE [Concomitant]
     Indication: DRUG USE FOR UNKNOWN INDICATION
  6. CALCIUM [Concomitant]
     Indication: MINERAL SUPPLEMENTATION
  7. VICODIN [Concomitant]
     Indication: PAIN

REACTIONS (7)
  - DIZZINESS [None]
  - DYSSTASIA [None]
  - INJECTION SITE PAIN [None]
  - MUSCULAR WEAKNESS [None]
  - MUSCULOSKELETAL STIFFNESS [None]
  - POSTURE ABNORMAL [None]
  - SKIN BURNING SENSATION [None]
